FAERS Safety Report 18304235 (Version 2)
Quarter: 2020Q4

REPORT INFORMATION
  Report Type: Report from Study
  Country: None (occurrence: US)
  Receive Date: 20200924
  Receipt Date: 20201217
  Transmission Date: 20210113
  Serious: Yes (Death, Other)
  Sender: FDA-Public Use
  Company Number: US-ABBVIE-20K-163-3579717-00

PATIENT
  Sex: Female

DRUGS (1)
  1. CREON [Suspect]
     Active Substance: PANCRELIPASE AMYLASE\PANCRELIPASE LIPASE\PANCRELIPASE PROTEASE
     Indication: PRODUCT USED FOR UNKNOWN INDICATION
     Dosage: 6 CAPSULES DAILY
     Route: 048
     Dates: start: 2016

REACTIONS (7)
  - Cardiomyopathy [Fatal]
  - Atrial fibrillation [Fatal]
  - Hospice care [Unknown]
  - Respiratory failure [Fatal]
  - Chronic kidney disease [Fatal]
  - Right ventricular failure [Fatal]
  - Hypoxia [Fatal]

NARRATIVE: CASE EVENT DATE: 2016
